FAERS Safety Report 15093524 (Version 1)
Quarter: 2018Q3

REPORT INFORMATION
  Report Type: Report from Study
  Country: US (occurrence: US)
  Receive Date: 20180629
  Receipt Date: 20180629
  Transmission Date: 20181010
  Serious: Yes (Hospitalization)
  Sender: FDA-Public Use
  Company Number: PHHO2018US007711

PATIENT
  Age: 70 Year
  Sex: Male
  Weight: 94 kg

DRUGS (4)
  1. CISPLATIN. [Suspect]
     Active Substance: CISPLATIN
     Indication: NEOPLASM
     Dosage: 30 MG/M2, DAY 1, 8
     Route: 042
     Dates: start: 20180619, end: 20180619
  2. LGX818 [Suspect]
     Active Substance: ENCORAFENIB
  3. BYL719 [Suspect]
     Active Substance: ALPELISIB
     Indication: NEOPLASM
     Dosage: 300 MG, QD
     Route: 048
     Dates: start: 20180619, end: 20180624
  4. DEXAMETHASONE. [Suspect]
     Active Substance: DEXAMETHASONE
     Indication: NAUSEA
     Dosage: 8 MG, BID (2 DAY POST CISPLATIN)
     Route: 065
     Dates: start: 20180619, end: 20180621

REACTIONS (1)
  - Diabetic ketoacidosis [Not Recovered/Not Resolved]

NARRATIVE: CASE EVENT DATE: 20180625
